FAERS Safety Report 18050902 (Version 2)
Quarter: 2020Q4

REPORT INFORMATION
  Report Type: Report from Study
  Country: BR (occurrence: BR)
  Receive Date: 20200721
  Receipt Date: 20201022
  Transmission Date: 20210113
  Serious: Yes (Other)
  Sender: FDA-Public Use
  Company Number: NVSC2020BR202833

PATIENT
  Age: 38 Year
  Sex: Male
  Weight: 150 kg

DRUGS (2)
  1. COSENTYX [Suspect]
     Active Substance: SECUKINUMAB
     Indication: PSORIATIC ARTHROPATHY
     Dosage: 300 MG, QMO
     Route: 058
     Dates: start: 20181009, end: 2020
  2. COSENTYX [Suspect]
     Active Substance: SECUKINUMAB
     Dosage: 300 MG, QMO
     Route: 058
     Dates: start: 202006

REACTIONS (14)
  - Pain in extremity [Recovering/Resolving]
  - Dry skin [Recovering/Resolving]
  - Skin haemorrhage [Recovering/Resolving]
  - Depression [Recovering/Resolving]
  - Product dose omission issue [Unknown]
  - Weight increased [Recovering/Resolving]
  - Back pain [Recovering/Resolving]
  - Arthralgia [Recovering/Resolving]
  - Hypertensive crisis [Recovering/Resolving]
  - Spinal pain [Recovering/Resolving]
  - Skin burning sensation [Recovering/Resolving]
  - Musculoskeletal stiffness [Recovering/Resolving]
  - Pruritus [Recovering/Resolving]
  - Arthritis [Recovering/Resolving]

NARRATIVE: CASE EVENT DATE: 2020
